FAERS Safety Report 8136385-2 (Version None)
Quarter: 2012Q1

REPORT INFORMATION
  Report Type: 
  Country: None (occurrence: None)
  Receive Date: 20120103
  Receipt Date: 20110929
  Transmission Date: 20120608
  Serious: No
  Sender: FDA-Public Use
  Company Number: AE-2011-001102

PATIENT
  Age: 38 Year
  Sex: Male

DRUGS (8)
  1. RIBAVIRIN [Concomitant]
  2. ATIVAN [Concomitant]
  3. FLOVENT [Concomitant]
  4. PEGASYS [Concomitant]
  5. ADDERALL (OBETROL) [Concomitant]
  6. MELOXICAM [Concomitant]
  7. LISINOPRIL [Concomitant]
  8. INCIVEK [Suspect]
     Dosage: 2250 MG (750 MG, 1 IN 8 HR), ORAL
     Route: 048
     Dates: start: 20110710

REACTIONS (2)
  - STOMATITIS [None]
  - AURICULAR SWELLING [None]
